FAERS Safety Report 10174019 (Version 1)
Quarter: 2014Q2

REPORT INFORMATION
  Report Type: Spontaneous
  Country: IN (occurrence: None)
  Receive Date: 20140513
  Receipt Date: 20140513
  Transmission Date: 20141212
  Serious: Yes (Hospitalization)
  Sender: FDA-Public Use
  Company Number: IPC201404-000206

PATIENT
  Age: 32 Year
  Sex: Male

DRUGS (4)
  1. PROPRANOLOL HYDROCHLORIDE [Suspect]
     Dosage: 50 TABLETS OF 40 MG
  2. REGULAR INSULIN [Suspect]
     Indication: TYPE 1 DIABETES MELLITUS
     Dosage: 1600 UNITS, SUBCUTANEOUS
     Route: 058
  3. DIGOXIN [Suspect]
     Dosage: 100 TABLETS OF 0.25 MG
  4. INSULIN (GLARGINE) (INSULIN) (INSULIN) [Concomitant]

REACTIONS (8)
  - Nausea [None]
  - Vomiting [None]
  - Bradycardia [None]
  - Hypoglycaemia [None]
  - Toxicity to various agents [None]
  - Overdose [None]
  - Suicide attempt [None]
  - Respiratory rate increased [None]
